FAERS Safety Report 18795583 (Version 3)
Quarter: 2021Q2

REPORT INFORMATION
  Report Type: Report from Study
  Country: US (occurrence: US)
  Receive Date: 20210127
  Receipt Date: 20210504
  Transmission Date: 20210717
  Serious: Yes (Death, Hospitalization, Other)
  Sender: FDA-Public Use
  Company Number: US-DSJP-DSU-2021-101756

PATIENT
  Age: 39 Year
  Sex: Female

DRUGS (2)
  1. ENHERTU [Suspect]
     Active Substance: FAM-TRASTUZUMAB DERUXTECAN-NXKI
     Indication: NEOPLASM MALIGNANT
     Dosage: 400 MG, ONCE EVERY 3 WK
     Route: 042
  2. ENHERTU [Suspect]
     Active Substance: FAM-TRASTUZUMAB DERUXTECAN-NXKI
     Indication: PRODUCT USED FOR UNKNOWN INDICATION
     Dosage: UNK
     Route: 065

REACTIONS (6)
  - Pneumonia [Unknown]
  - Neutropenia [Recovered/Resolved]
  - Gastritis [Unknown]
  - Hospitalisation [Unknown]
  - Pulmonary toxicity [Fatal]
  - Weight decreased [Unknown]

NARRATIVE: CASE EVENT DATE: 202103
